FAERS Safety Report 20955891 (Version 1)
Quarter: 2022Q2

REPORT INFORMATION
  Report Type: Spontaneous
  Country: US (occurrence: None)
  Receive Date: 20220614
  Receipt Date: 20220614
  Transmission Date: 20220721
  Serious: No
  Sender: FDA-Public Use
  Company Number: US-MDD US Operations-MDD202110-002132

PATIENT
  Age: 64 Year
  Sex: Female

DRUGS (2)
  1. APOKYN [Suspect]
     Active Substance: APOMORPHINE HYDROCHLORIDE
     Indication: Parkinson^s disease
     Route: 058
     Dates: start: 20170425
  2. NOURIANZ [Concomitant]
     Active Substance: ISTRADEFYLLINE
     Dosage: NOT PROVIDED

REACTIONS (2)
  - Fatigue [Unknown]
  - Dizziness [Unknown]
